FAERS Safety Report 14904451 (Version 1)
Quarter: 2018Q2

REPORT INFORMATION
  Report Type: Spontaneous
  Country: US (occurrence: US)
  Receive Date: 20180517
  Receipt Date: 20180517
  Transmission Date: 20180711
  Serious: No
  Sender: FDA-Public Use
  Company Number: US-SA-2017SA149554

PATIENT
  Age: 80 Year
  Sex: Female
  Weight: 95.25 kg

DRUGS (2)
  1. BYETTA [Concomitant]
     Active Substance: EXENATIDE
     Route: 065
  2. LANTUS [Suspect]
     Active Substance: INSULIN GLARGINE
     Indication: TYPE 2 DIABETES MELLITUS
     Route: 051
     Dates: start: 2007

REACTIONS (1)
  - Drug ineffective [Unknown]
